FAERS Safety Report 16509832 (Version 3)
Quarter: 2019Q3

REPORT INFORMATION
  Report Type: Spontaneous
  Country: PL (occurrence: PL)
  Receive Date: 20190702
  Receipt Date: 20190823
  Transmission Date: 20191004
  Serious: Yes (Other)
  Sender: FDA-Public Use
  Company Number: PL-ROCHE-2344188

PATIENT
  Sex: Female
  Weight: 63 kg

DRUGS (4)
  1. HERCEPTIN [Suspect]
     Active Substance: TRASTUZUMAB
     Indication: HER-2 POSITIVE BREAST CANCER
     Route: 042
     Dates: start: 20160813
  2. HERCEPTIN [Suspect]
     Active Substance: TRASTUZUMAB
     Route: 042
  3. PERJETA [Suspect]
     Active Substance: PERTUZUMAB
     Indication: HER-2 POSITIVE BREAST CANCER
     Route: 042
  4. HERCEPTIN [Suspect]
     Active Substance: TRASTUZUMAB
     Indication: HER-2 POSITIVE BREAST CANCER
     Dosage: 3 ADMINISTRATION IN THIS PERIOD
     Route: 058
     Dates: start: 20190311, end: 20190423

REACTIONS (2)
  - Hallucination, visual [Recovered/Resolved]
  - Metastases to central nervous system [Unknown]

NARRATIVE: CASE EVENT DATE: 201903
